FAERS Safety Report 23956149 (Version 1)
Quarter: 2024Q2

REPORT INFORMATION
  Report Type: Spontaneous
  Country: CA (occurrence: CA)
  Receive Date: 20240610
  Receipt Date: 20240610
  Transmission Date: 20240716
  Serious: Yes (Hospitalization, Other)
  Sender: FDA-Public Use
  Company Number: CA-TEVA-VS-3205623

PATIENT
  Age: 36 Year
  Sex: Female
  Weight: 109 kg

DRUGS (10)
  1. DOXORUBICIN HYDROCHLORIDE [Suspect]
     Active Substance: DOXORUBICIN HYDROCHLORIDE
     Indication: Breast cancer
     Route: 042
  2. FILGRASTIM [Concomitant]
     Active Substance: FILGRASTIM
     Indication: Product used for unknown indication
     Route: 065
  3. DEXAMETHASONE [Concomitant]
     Active Substance: DEXAMETHASONE
     Indication: Product used for unknown indication
     Dosage: TIME INTERVAL: CYCLICAL
     Route: 048
  4. CHOLECALCIFEROL [Concomitant]
     Active Substance: CHOLECALCIFEROL
     Indication: Product used for unknown indication
     Route: 065
  5. AKYNZEO [Concomitant]
     Indication: Product used for unknown indication
     Route: 065
  6. CYCLOPHOSPHAMIDE [Suspect]
     Active Substance: CYCLOPHOSPHAMIDE
     Indication: Breast cancer
     Route: 042
  7. MESALAMINE [Concomitant]
     Active Substance: MESALAMINE
     Indication: Product used for unknown indication
     Dosage: TABLET (ENTERIC- COATED), FREQUENCY: EVERY DAY
     Route: 048
  8. SERTRALINE [Concomitant]
     Active Substance: SERTRALINE HYDROCHLORIDE
     Indication: Product used for unknown indication
  9. PANTOPRAZOLE SODIUM [Concomitant]
     Active Substance: PANTOPRAZOLE SODIUM
     Indication: Product used for unknown indication
     Dosage: TABLET (ENTERIC- COATED)
     Route: 065
  10. METOCLOPRAMIDE [Concomitant]
     Active Substance: METOCLOPRAMIDE
     Indication: Product used for unknown indication
     Route: 065

REACTIONS (1)
  - Febrile neutropenia [Recovering/Resolving]
